FAERS Safety Report 16160009 (Version 3)
Quarter: 2020Q2

REPORT INFORMATION
  Report Type: Report from Study
  Country: DE (occurrence: DE)
  Receive Date: 20190404
  Receipt Date: 20200514
  Transmission Date: 20200713
  Serious: Yes (Hospitalization)
  Sender: FDA-Public Use
  Company Number: DE-PFIZER INC-2019139056

PATIENT
  Age: 3 Year
  Sex: Female
  Weight: 16.3 kg

DRUGS (1)
  1. SOMATROPIN. [Suspect]
     Active Substance: SOMATROPIN
     Indication: PRADER-WILLI SYNDROME
     Dosage: 0.3 MG, QD
     Route: 058
     Dates: start: 20110606

REACTIONS (3)
  - Snoring [Recovered/Resolved]
  - Dysphonia [Recovered/Resolved]
  - Speech disorder developmental [Recovered/Resolved]

NARRATIVE: CASE EVENT DATE: 20140120
